FAERS Safety Report 5507813-3 (Version None)
Quarter: 2007Q4

REPORT INFORMATION
  Report Type: 
  Country: None (occurrence: None)
  Receive Date: 20071106
  Receipt Date: 20071031
  Transmission Date: 20080405
  Serious: Yes (Disabling)
  Sender: FDA-Public Use
  Company Number: JP-MERCK-0709USA04679

PATIENT
  Sex: Male

DRUGS (4)
  1. HYZAAR [Suspect]
     Indication: HYPERTENSION
     Route: 048
  2. MICARDIS [Concomitant]
     Indication: HYPERTENSION
     Route: 048
  3. MICARDIS [Concomitant]
     Route: 048
  4. ACECOL [Concomitant]
     Indication: HYPERTENSION
     Route: 048

REACTIONS (2)
  - NEPHRITIS [None]
  - NEPHRITIS INTERSTITIAL [None]
